FAERS Safety Report 7816984-5 (Version None)
Quarter: 2011Q4

REPORT INFORMATION
  Report Type: 
  Country: None (occurrence: None)
  Receive Date: 20111017
  Receipt Date: 20111003
  Transmission Date: 20120403
  Serious: Yes (Other)
  Sender: FDA-Public Use
  Company Number: US-UCBSA-040586

PATIENT
  Age: 47 Year
  Sex: Female

DRUGS (19)
  1. PENTASA [Concomitant]
     Indication: CROHN'S DISEASE
     Dosage: 8 TABLETS A DAY
     Route: 048
     Dates: start: 20080101
  2. EFFEXOR [Concomitant]
     Indication: DEPRESSION
     Route: 048
     Dates: start: 20050101
  3. MULTI-VITAMIN [Concomitant]
  4. NASACORT [Concomitant]
     Dosage: 2 SPRAYS
  5. CIMZIA [Suspect]
     Route: 058
  6. CALCIUM CARBONATE [Concomitant]
  7. SYNTHROID [Concomitant]
     Indication: HYPOTHYROIDISM
     Route: 048
     Dates: start: 20080101
  8. SYMBICORT [Concomitant]
     Indication: ASTHMA
     Dosage: 2 PUFFS ONCE A DAY, 160-4.5 MCG/ACTUATION HFA
     Route: 055
     Dates: start: 20110601
  9. PRANDIN [Concomitant]
     Indication: DIABETES MELLITUS
     Dosage: 1-3 TABS THREE TIMES DAILY, VARIES DEPENDS ON HOW MANY CARBS SHE EATS
     Route: 048
     Dates: start: 20080101
  10. ALBUTEROL [Concomitant]
  11. ALTACE [Concomitant]
     Indication: HYPERTENSION
     Route: 048
     Dates: start: 20080101
  12. ACIDOPHILUS [Concomitant]
  13. CLARITIN [Concomitant]
  14. CIMZIA [Suspect]
     Indication: CROHN'S DISEASE
     Route: 058
     Dates: end: 20110826
  15. PREDNISONE [Concomitant]
     Dosage: FOR 90 DAYS
     Route: 048
     Dates: start: 20110824
  16. JANUVIA [Concomitant]
     Indication: DIABETES MELLITUS
     Route: 048
     Dates: start: 20070101
  17. TRILIPIX [Concomitant]
     Indication: BLOOD TRIGLYCERIDES INCREASED
     Route: 048
     Dates: start: 20090101
  18. VITAMIN D [Concomitant]
  19. ALIGN [Concomitant]

REACTIONS (3)
  - ABDOMINAL MASS [None]
  - PSORIASIS [None]
  - HERPES ZOSTER [None]
